FAERS Safety Report 5123968-7 (Version None)
Quarter: 2006Q3

REPORT INFORMATION
  Report Type: 
  Country: None (occurrence: None)
  Receive Date: 20060811
  Receipt Date: 20060626
  Transmission Date: 20061208
  Serious: No
  Sender: FDA-Public Use
  Company Number: S06-USA-02493-01

PATIENT
  Sex: Female

DRUGS (3)
  1. NAMENDA [Suspect]
     Dosage: 5 MG QD PO
     Route: 048
  2. NAMENDA [Suspect]
     Dosage: 5 MG BID PO
     Route: 048
  3. NAMENDA [Suspect]
     Dosage: 15 MG QD PO
     Route: 048

REACTIONS (1)
  - DIZZINESS [None]
